FAERS Safety Report 18232459 (Version 1)
Quarter: 2020Q3

REPORT INFORMATION
  Report Type: Spontaneous
  Country: FR (occurrence: FR)
  Receive Date: 20200904
  Receipt Date: 20200904
  Transmission Date: 20201103
  Serious: Yes (Other)
  Sender: FDA-Public Use
  Company Number: FR-TEVA-2020-FR-1822258

PATIENT
  Age: 22 Year
  Sex: Male

DRUGS (5)
  1. BUPRENORPHINE. [Suspect]
     Active Substance: BUPRENORPHINE
     Dosage: UP TO 24MG / DAY
     Route: 060
     Dates: start: 2020
  2. CYAMEMAZINE [Suspect]
     Active Substance: CYAMEMAZINE
     Dosage: 25 MG MORNING AND NOON, 50 MG IN THE EVENING, 100MG
     Route: 048
  3. MIRTAZAPINE. [Suspect]
     Active Substance: MIRTAZAPINE
     Dosage: 30MG
     Route: 048
  4. METHADONE [Suspect]
     Active Substance: METHADONE HYDROCHLORIDE
     Dosage: UP TO 40 MG PER DAY FOR 3 DAYS
     Route: 065
     Dates: start: 2020
  5. DIAZEPAM. [Suspect]
     Active Substance: DIAZEPAM
     Dosage: 30MG
     Route: 048

REACTIONS (1)
  - Drug dependence [Not Recovered/Not Resolved]
